FAERS Safety Report 13984865 (Version 6)
Quarter: 2018Q4

REPORT INFORMATION
  Report Type: Report from Study
  Country: None (occurrence: US)
  Receive Date: 20170918
  Receipt Date: 20181214
  Transmission Date: 20190204
  Serious: Yes (Hospitalization, Other)
  Sender: FDA-Public Use
  Company Number: US-ABBVIE-17K-163-2098441-00

PATIENT
  Age: 53 Year
  Sex: Female

DRUGS (9)
  1. HUMIRA [Suspect]
     Active Substance: ADALIMUMAB
     Indication: PSORIASIS
     Route: 058
     Dates: start: 20170524, end: 20170719
  2. LISINOPRIL. [Concomitant]
     Active Substance: LISINOPRIL
     Indication: DIABETES PROPHYLAXIS
  3. HUMIRA [Suspect]
     Active Substance: ADALIMUMAB
     Route: 058
     Dates: start: 20170906
  4. VALIUM [Concomitant]
     Active Substance: DIAZEPAM
     Indication: MUSCLE SPASMS
  5. VESICARE [Concomitant]
     Active Substance: SOLIFENACIN SUCCINATE
     Indication: PRODUCT USED FOR UNKNOWN INDICATION
  6. INSULIN [Concomitant]
     Active Substance: INSULIN NOS
     Indication: PRODUCT USED FOR UNKNOWN INDICATION
  7. AMITIZA [Concomitant]
     Active Substance: LUBIPROSTONE
     Indication: CONSTIPATION
  8. THE MAGIC BULLET [Concomitant]
     Active Substance: BISACODYL
     Indication: PRODUCT USED FOR UNKNOWN INDICATION
     Route: 054
  9. NEURONTIN [Concomitant]
     Active Substance: GABAPENTIN
     Indication: NERVE INJURY

REACTIONS (26)
  - Feeding disorder [Recovering/Resolving]
  - Blood glucose decreased [Recovering/Resolving]
  - Irritable bowel syndrome [Recovering/Resolving]
  - Nausea [Recovering/Resolving]
  - Psoriasis [Unknown]
  - Temperature intolerance [Unknown]
  - Therapeutic response unexpected [Unknown]
  - Skin laceration [Not Recovered/Not Resolved]
  - Drug effect decreased [Not Recovered/Not Resolved]
  - Blood glucose decreased [Recovered/Resolved]
  - Bone disorder [Not Recovered/Not Resolved]
  - Fatigue [Unknown]
  - Spinal operation [Unknown]
  - Thermal burn [Recovering/Resolving]
  - Weight increased [Unknown]
  - Feeling abnormal [Not Recovered/Not Resolved]
  - Nail growth abnormal [Unknown]
  - Skin exfoliation [Not Recovered/Not Resolved]
  - Loss of consciousness [Recovering/Resolving]
  - Limb injury [Not Recovered/Not Resolved]
  - Fall [Recovering/Resolving]
  - Dehydration [Recovering/Resolving]
  - Hair growth abnormal [Unknown]
  - Concussion [Not Recovered/Not Resolved]
  - Nasopharyngitis [Recovered/Resolved]
  - Photophobia [Recovering/Resolving]

NARRATIVE: CASE EVENT DATE: 2017
